FAERS Safety Report 12418830 (Version 2)
Quarter: 2016Q2

REPORT INFORMATION
  Report Type: Spontaneous
  Country: BR (occurrence: BR)
  Receive Date: 20160531
  Receipt Date: 20160624
  Transmission Date: 20160815
  Serious: Yes (Other)
  Sender: FDA-Public Use
  Company Number: BR-AMGEN-BRASP2016067900

PATIENT
  Age: 38 Year
  Sex: Female

DRUGS (1)
  1. ENBREL [Suspect]
     Active Substance: ETANERCEPT
     Indication: PRODUCT USED FOR UNKNOWN INDICATION
     Dosage: UNSPECIFIED DOSE, WEEKLY (EVERY THURSDAY)
     Route: 065
     Dates: start: 201507

REACTIONS (5)
  - Rhinalgia [Unknown]
  - Rhinitis [Not Recovered/Not Resolved]
  - Throat irritation [Unknown]
  - Rheumatoid arthritis [Unknown]
  - Uveitis [Recovering/Resolving]

NARRATIVE: CASE EVENT DATE: 201509
